FAERS Safety Report 23372071 (Version 2)
Quarter: 2024Q1

REPORT INFORMATION
  Report Type: Spontaneous
  Country: US (occurrence: US)
  Receive Date: 20240105
  Receipt Date: 20240228
  Transmission Date: 20240410
  Serious: No
  Sender: FDA-Public Use
  Company Number: US-ABBVIE-5572861

PATIENT
  Age: 54 Year
  Sex: Male
  Weight: 136 kg

DRUGS (2)
  1. DALVANCE [Suspect]
     Active Substance: DALBAVANCIN
     Indication: Staphylococcal infection
     Dosage: TIME INTERVAL: AS NECESSARY: FORM STRENGTH: 1500 MILLIGRAM, 500MG, FIRST DOSE OF 1000 MG IN 30 MI...
     Route: 042
     Dates: start: 20231222, end: 20231222
  2. DALVANCE [Suspect]
     Active Substance: DALBAVANCIN
     Indication: Staphylococcal infection
     Dosage: TIME INTERVAL: AS NECESSARY: FORM STRENGTH: 1500 MILLIGRAM, 500MG
     Route: 042

REACTIONS (9)
  - Rash [Recovered/Resolved]
  - Erythema [Unknown]
  - Erythema [Unknown]
  - Swelling face [Unknown]
  - Angioedema [Unknown]
  - Flushing [Unknown]
  - Dyspnoea [Unknown]
  - Pruritus [Recovered/Resolved]
  - Oedema [Unknown]

NARRATIVE: CASE EVENT DATE: 20231222
